FAERS Safety Report 5272669-3 (Version None)
Quarter: 2007Q1

REPORT INFORMATION
  Report Type: 
  Country: None (occurrence: None)
  Receive Date: 20070316
  Receipt Date: 20070316
  Transmission Date: 20070707
  Serious: Yes (Hospitalization)
  Sender: FDA-Public Use
  Company Number: None

PATIENT
  Sex: Male

DRUGS (3)
  1. ENOXAPARIN SODIUM [Suspect]
     Indication: ANTIPHOSPHOLIPID SYNDROME
     Dosage: 150 MG Q 12 HR (SC)
     Route: 058
     Dates: start: 20060629, end: 20060705
  2. ENOXAPARIN SODIUM [Suspect]
     Indication: DEEP VEIN THROMBOSIS
     Dosage: 150 MG Q 12 HR (SC)
     Route: 058
     Dates: start: 20060629, end: 20060705
  3. WARFARIN SODIUM [Suspect]
     Dosage: 8 MG 3X/WK 6MG 4X/WK PO
     Route: 048
     Dates: start: 20010101, end: 20060101

REACTIONS (3)
  - ABDOMINAL PAIN UPPER [None]
  - CELLULITIS [None]
  - RETROPERITONEAL HAEMATOMA [None]
